FAERS Safety Report 8967180 (Version 1)
Quarter: 2012Q4

REPORT INFORMATION
  Report Type: 
  Country: ES (occurrence: ES)
  Receive Date: 20121214
  Receipt Date: 20121214
  Transmission Date: 20130627
  Serious: Yes (Hospitalization)
  Sender: FDA-Public Use
  Company Number: ES-COVIDIEN/TYCO HEALTHCARE/MALLINCKRODT-T201204294

PATIENT
  Age: 43 Year
  Sex: Female
  Weight: 48 kg

DRUGS (10)
  1. EXALGO EXTENDED RELEASE [Suspect]
     Indication: PRODUCT USED FOR UNKNOWN INDICATION
     Dosage: 8 mg, 1 in 1 day
     Route: 048
     Dates: start: 20090722
  2. EXALGO EXTENDED RELEASE [Suspect]
     Dosage: 16 mg, 1 in 1 day
     Route: 048
  3. PACLITAXEL [Suspect]
     Indication: BREAST CANCER
     Dosage: 213 mg, 1 in 2 week
     Route: 042
     Dates: start: 20090723
  4. BEVACIZUMAB [Suspect]
     Indication: BREAST CANCER
     Dosage: UNK
     Route: 042
  5. GEMCITABINE [Suspect]
     Indication: BREAST CANCER
     Dosage: 480 mg once in two weeks
     Route: 042
     Dates: start: 20090723
  6. OXYNORM [Concomitant]
     Indication: PRODUCT USED FOR UNKNOWN INDICATION
     Dosage: 10 mg, UNK
     Dates: start: 20090714
  7. ORFIDAL [Concomitant]
     Indication: PRODUCT USED FOR UNKNOWN INDICATION
     Dosage: 2 mg, UNK
     Dates: start: 20090714
  8. MOVICOL                            /01625101/ [Concomitant]
     Indication: PRODUCT USED FOR UNKNOWN INDICATION
     Dosage: 1 mg, UNK
     Dates: start: 20090714
  9. OMEPRAZOLE [Concomitant]
     Indication: PRODUCT USED FOR UNKNOWN INDICATION
     Dosage: 20 mg, UNK
     Dates: start: 20090714
  10. NAPROXEN [Concomitant]
     Dosage: UNK

REACTIONS (2)
  - Vomiting [Recovered/Resolved]
  - Migraine [Unknown]
